FAERS Safety Report 5083448-4 (Version None)
Quarter: 2006Q3

REPORT INFORMATION
  Report Type: 
  Country: None (occurrence: None)
  Receive Date: 20060818
  Receipt Date: 20060810
  Transmission Date: 20061208
  Serious: Yes (Hospitalization)
  Sender: FDA-Public Use
  Company Number: 2006PK01734

PATIENT
  Age: 53 Year
  Sex: Male

DRUGS (5)
  1. IRESSA [Suspect]
     Dates: start: 20051125, end: 20051227
  2. CORTISONE CIBA [Concomitant]
     Route: 048
  3. PANTOZOL [Concomitant]
     Route: 048
  4. FLORINEF [Concomitant]
     Route: 048
  5. TEMESTA [Concomitant]
     Route: 048

REACTIONS (2)
  - DERMATITIS ACNEIFORM [None]
  - PYREXIA [None]
